FAERS Safety Report 11734281 (Version 1)
Quarter: 2015Q4

REPORT INFORMATION
  Report Type: Report from Study
  Country: KR (occurrence: KR)
  Receive Date: 20151113
  Receipt Date: 20151113
  Transmission Date: 20160304
  Serious: Yes (Hospitalization)
  Sender: FDA-Public Use
  Company Number: KR-AMGEN-KORNI2015044613

PATIENT
  Age: 57 Year
  Sex: Male
  Weight: 67 kg

DRUGS (10)
  1. IVABRADINE [Suspect]
     Active Substance: IVABRADINE
     Indication: CARDIAC FAILURE CHRONIC
     Dosage: 5 MG, BID
     Route: 048
     Dates: start: 20141114, end: 20141127
  2. ASPIRIN PROTECT [Concomitant]
     Active Substance: ASPIRIN
     Dosage: UNK
     Dates: start: 20140204
  3. SIGMART [Concomitant]
     Active Substance: NICORANDIL
     Dosage: UNK
     Dates: start: 20140204
  4. ALDACTONE [Concomitant]
     Active Substance: SPIRONOLACTONE
     Dosage: UNK
     Dates: start: 20140123
  5. LASIX [Concomitant]
     Active Substance: FUROSEMIDE
     Dosage: UNK
     Dates: start: 20140123
  6. PLATLESS [Concomitant]
     Dosage: UNK
     Dates: start: 20140204
  7. WARFARIN SODIUM. [Concomitant]
     Active Substance: WARFARIN SODIUM
     Dosage: UNK
     Dates: start: 20140210
  8. NEUSTATIN A [Concomitant]
     Dosage: UNK
     Dates: start: 20140912
  9. DIOVAN [Concomitant]
     Active Substance: VALSARTAN
     Dosage: UNK
     Dates: start: 20140509
  10. VASTINAN MR [Concomitant]
     Dosage: 35 MG, UNK
     Dates: start: 20141010

REACTIONS (1)
  - Ventricular tachycardia [Recovered/Resolved]

NARRATIVE: CASE EVENT DATE: 20141120
